FAERS Safety Report 25287916 (Version 1)
Quarter: 2025Q2

REPORT INFORMATION
  Report Type: Spontaneous
  Country: US (occurrence: None)
  Receive Date: 20250502
  Receipt Date: 20250502
  Transmission Date: 20250716
  Serious: Yes (Hospitalization)
  Sender: FDA-CTU
  Company Number: None

PATIENT
  Age: 61 Year
  Sex: Female
  Weight: 80 kg

DRUGS (3)
  1. GADOLINIUM [Suspect]
     Active Substance: GADOLINIUM
     Dates: start: 202503, end: 20250329
  2. DIETARY SUPPLEMENT [Suspect]
     Active Substance: DIETARY SUPPLEMENT
  3. DIETARY SUPPLEMENT [Suspect]
     Active Substance: DIETARY SUPPLEMENT

REACTIONS (4)
  - Wrong product administered [None]
  - Hypersensitivity [None]
  - Product appearance confusion [None]
  - Product label confusion [None]

NARRATIVE: CASE EVENT DATE: 20250328
